FAERS Safety Report 9607513 (Version 1)
Quarter: 2013Q4

REPORT INFORMATION
  Report Type: Spontaneous
  Country: US (occurrence: None)
  Receive Date: 20131007
  Receipt Date: 20131007
  Transmission Date: 20140711
  Serious: Yes (Life-Threatening, Hospitalization, Disabling)
  Sender: FDA-Public Use
  Company Number: None

PATIENT
  Age: 62 Year
  Sex: Male
  Weight: 81.65 kg

DRUGS (1)
  1. CYMBALTA [Suspect]
     Indication: DEPRESSION
     Dosage: TAKEN BY MOUTH
     Dates: start: 20120530, end: 20130626

REACTIONS (12)
  - Muscle spasms [None]
  - Paraesthesia [None]
  - Pain [None]
  - Vomiting [None]
  - Coordination abnormal [None]
  - Fatigue [None]
  - Dyspnoea [None]
  - Pruritus [None]
  - Rash [None]
  - Muscle twitching [None]
  - Blood cholesterol increased [None]
  - Bradyphrenia [None]
